FAERS Safety Report 21164905 (Version 1)
Quarter: 2022Q3

REPORT INFORMATION
  Report Type: Spontaneous
  Country: US (occurrence: US)
  Receive Date: 20220803
  Receipt Date: 20220803
  Transmission Date: 20221027
  Serious: No
  Sender: FDA-Public Use
  Company Number: US-CIPLA LTD.-2022US00991

PATIENT
  Sex: Female

DRUGS (4)
  1. MELOXICAM [Interacting]
     Active Substance: MELOXICAM
     Indication: Spinal osteoarthritis
     Dosage: 15 MILLIGRAM, QD WITH DINNER
     Route: 048
     Dates: start: 20220127, end: 20220206
  2. LISINOPRIL [Interacting]
     Active Substance: LISINOPRIL
     Indication: Migraine
     Dosage: 10 MILLIGRAM, QD
     Route: 065
  3. METOPROLOL [Suspect]
     Active Substance: METOPROLOL
     Indication: Migraine
     Dosage: UNK
     Route: 065
  4. OMEPRAZOLE [Concomitant]
     Active Substance: OMEPRAZOLE
     Indication: Gastrooesophageal reflux disease
     Dosage: UNK
     Route: 065

REACTIONS (7)
  - Peripheral swelling [Recovering/Resolving]
  - Joint swelling [Recovering/Resolving]
  - Product colour issue [Unknown]
  - Drug ineffective [Unknown]
  - Drug interaction [Unknown]
  - Off label use [Not Recovered/Not Resolved]
  - Product use in unapproved indication [Not Recovered/Not Resolved]

NARRATIVE: CASE EVENT DATE: 20220127
